FAERS Safety Report 8812108 (Version 2)
Quarter: 2015Q1

REPORT INFORMATION
  Report Type: Report from Study
  Country: US (occurrence: US)
  Receive Date: 20120927
  Receipt Date: 20150314
  Transmission Date: 20150721
  Serious: Yes (Death)
  Sender: FDA-Public Use
  Company Number: US-ROCHE-1138218

PATIENT
  Sex: Female

DRUGS (10)
  1. AVASTIN [Suspect]
     Active Substance: BEVACIZUMAB
     Route: 042
  2. TORISEL [Concomitant]
     Active Substance: TEMSIROLIMUS
     Route: 042
  3. CARBOPLATIN. [Concomitant]
     Active Substance: CARBOPLATIN
     Route: 042
  4. CARBOPLATIN. [Concomitant]
     Active Substance: CARBOPLATIN
     Route: 042
  5. AVASTIN [Suspect]
     Active Substance: BEVACIZUMAB
     Indication: SOFT TISSUE SARCOMA
     Route: 042
  6. DIPHENHYDRAMINE [Concomitant]
     Active Substance: DIPHENHYDRAMINE
     Route: 042
  7. ONDANSETRON [Concomitant]
     Active Substance: ONDANSETRON
     Route: 042
  8. CARBOPLATIN. [Concomitant]
     Active Substance: CARBOPLATIN
     Route: 042
  9. CARBOPLATIN. [Concomitant]
     Active Substance: CARBOPLATIN
     Route: 042
  10. AVASTIN [Suspect]
     Active Substance: BEVACIZUMAB
     Route: 042

REACTIONS (1)
  - Death [Fatal]
